FAERS Safety Report 6681968-X (Version None)
Quarter: 2010Q2

REPORT INFORMATION
  Report Type: 
  Country: None (occurrence: None)
  Receive Date: 20100408
  Receipt Date: 20100325
  Transmission Date: 20101027
  Serious: Yes (Death)
  Sender: FDA-Public Use
  Company Number: US-144949

PATIENT
  Sex: Female

DRUGS (4)
  1. WINRHO SDF LIQUID [Suspect]
     Indication: IDIOPATHIC THROMBOCYTOPENIC PURPURA
     Dosage: (6400 IU 1X/WEEK INTRAVENOUS)
     Route: 042
     Dates: start: 20090109, end: 20090109
  2. WINRHO SDF LIQUID [Suspect]
     Indication: IDIOPATHIC THROMBOCYTOPENIC PURPURA
     Dosage: (6400 IU 1X/WEEK INTRAVENOUS)
     Route: 042
     Dates: start: 20090116, end: 20090116
  3. NPLATE [Concomitant]
  4. CORTICOSTEROIDS [Concomitant]

REACTIONS (2)
  - HAEMOLYSIS [None]
  - SEPTIC SHOCK [None]
